FAERS Safety Report 22968334 (Version 2)
Quarter: 2023Q4

REPORT INFORMATION
  Report Type: Spontaneous
  Country: JP (occurrence: JP)
  Receive Date: 20230921
  Receipt Date: 20231019
  Transmission Date: 20240109
  Serious: Yes (Other)
  Sender: FDA-Public Use
  Company Number: JP-PFIZER INC-PV202300158305

PATIENT
  Age: 85 Year
  Sex: Female
  Weight: 49.8 kg

DRUGS (3)
  1. PAXLOVID [Interacting]
     Active Substance: NIRMATRELVIR\RITONAVIR
     Indication: COVID-19 treatment
     Dosage: 1 SHEET PER DAY(AS REPORTED)
     Route: 048
     Dates: start: 20230823, end: 20230828
  2. CILNIDIPINE [Interacting]
     Active Substance: CILNIDIPINE
     Indication: Hypertension
     Dosage: 20 MG, 1X/DAY
     Route: 048
     Dates: start: 20230630
  3. VALSARTAN [Suspect]
     Active Substance: VALSARTAN
     Indication: Hypertension
     Dosage: 80 MG, 1X/DAY
     Route: 048
     Dates: start: 20230630

REACTIONS (3)
  - Drug interaction [Recovering/Resolving]
  - Bradycardia [Recovering/Resolving]
  - Blood pressure decreased [Recovering/Resolving]

NARRATIVE: CASE EVENT DATE: 20230824
